FAERS Safety Report 5228032-4 (Version None)
Quarter: 2007Q1

REPORT INFORMATION
  Report Type: 
  Country: None (occurrence: None)
  Receive Date: 20061201
  Receipt Date: 20061026
  Transmission Date: 20070707
  Serious: Yes (Hospitalization)
  Sender: FDA-Public Use
  Company Number: 2006-0010544

PATIENT
  Age: 50 Year
  Sex: Male
  Weight: 86.1834 kg

DRUGS (4)
  1. TRUVADA [Suspect]
     Indication: HIV INFECTION
     Dates: start: 20061001
  2. EFAVIRENZ [Concomitant]
  3. BACTRIM [Concomitant]
  4. INDOCIN [Concomitant]

REACTIONS (1)
  - BLOOD CREATININE INCREASED [None]
